FAERS Safety Report 7479604-8 (Version None)
Quarter: 2011Q2

REPORT INFORMATION
  Report Type: 
  Country: None (occurrence: None)
  Receive Date: 20110513
  Receipt Date: 20091010
  Transmission Date: 20111010
  Serious: Yes (Hospitalization, Other)
  Sender: FDA-Public Use
  Company Number: US-BAYER-2011-006288

PATIENT
  Age: 70 Year
  Sex: Female
  Weight: 78 kg

DRUGS (12)
  1. TRASYLOL [Suspect]
     Indication: MITRAL VALVE REPAIR
     Dosage: LOADING DOSE 150ML THEN 50ML/HR
     Dates: start: 20040727, end: 20040727
  2. DIOVAN [Concomitant]
     Dosage: 80 MG, QD
     Route: 048
  3. NITROGLYCERIN [Concomitant]
     Dosage: 150MG TOTAL
     Route: 042
     Dates: start: 20040727, end: 20040727
  4. RED BLOOD CELLS, CONCENTRATED [Concomitant]
     Dosage: UNK
     Dates: start: 20040727
  5. AMIODARONE HCL [Concomitant]
     Dosage: UNK
     Route: 042
     Dates: start: 20040727, end: 20040727
  6. PLASMA [Concomitant]
     Dosage: UNK
     Dates: start: 20040727
  7. TRASYLOL [Suspect]
     Indication: CORONARY ARTERY BYPASS
  8. HEPARIN [Concomitant]
     Dosage: 10000 UNITS TOTAL
     Route: 042
     Dates: start: 20040727, end: 20040727
  9. DOBUTAMINE HYDROCHLORIDE [Concomitant]
     Dosage: UNK
     Route: 042
     Dates: start: 20040727, end: 20040727
  10. HYDROCHLOROTHIAZIDE [Concomitant]
     Dosage: 25 MG, QD
     Route: 048
  11. VASOPRESSIN [VASOPRESSIN] [Concomitant]
     Dosage: USED IN PUMP, NO DOSE INDICATED
     Route: 042
     Dates: start: 20040727, end: 20040727
  12. CRYOPRECIPITATES [Concomitant]
     Dosage: UNK
     Dates: start: 20040727

REACTIONS (13)
  - MULTI-ORGAN FAILURE [None]
  - PSYCHIATRIC SYMPTOM [None]
  - FEAR OF DEATH [None]
  - ANXIETY [None]
  - NERVOUSNESS [None]
  - RENAL FAILURE [None]
  - RENAL INJURY [None]
  - INJURY [None]
  - FEAR [None]
  - UNEVALUABLE EVENT [None]
  - PAIN [None]
  - DEPRESSION [None]
  - EMOTIONAL DISTRESS [None]
